FAERS Safety Report 15801416 (Version 4)
Quarter: 2019Q1

REPORT INFORMATION
  Report Type: Report from Study
  Country: None (occurrence: GB)
  Receive Date: 20190109
  Receipt Date: 20190218
  Transmission Date: 20190417
  Serious: Yes (Hospitalization)
  Sender: FDA-Public Use
  Company Number: GB-ABBVIE-19K-167-2613777-00

PATIENT
  Sex: Male

DRUGS (2)
  1. HUMIRA [Suspect]
     Active Substance: ADALIMUMAB
     Indication: CROHN^S DISEASE
     Route: 058
     Dates: start: 20180806, end: 201812
  2. HUMIRA [Suspect]
     Active Substance: ADALIMUMAB
     Route: 058
     Dates: start: 201901, end: 2019

REACTIONS (6)
  - Infection [Unknown]
  - Device issue [Unknown]
  - Weight decreased [Recovering/Resolving]
  - Fatigue [Unknown]
  - Product quality issue [Unknown]
  - Eczema [Unknown]

NARRATIVE: CASE EVENT DATE: 2018
